FAERS Safety Report 9383545 (Version 4)
Quarter: 2014Q3

REPORT INFORMATION
  Report Type: Spontaneous
  Country: US (occurrence: US)
  Receive Date: 20130704
  Receipt Date: 20140723
  Transmission Date: 20150326
  Serious: No
  Sender: FDA-Public Use
  Company Number: US-PFIZER INC-2013115982

PATIENT
  Age: 72 Year
  Sex: Female

DRUGS (1)
  1. AZITHROMYCIN [Suspect]
     Active Substance: AZITHROMYCIN ANHYDROUS
     Dosage: UNK

REACTIONS (4)
  - Drug hypersensitivity [Unknown]
  - Circumstance or information capable of leading to medication error [Unknown]
  - Product solubility abnormal [Unknown]
  - Diarrhoea [Unknown]
